FAERS Safety Report 4750672-7 (Version None)
Quarter: 2005Q3

REPORT INFORMATION
  Report Type: 
  Country: None (occurrence: None)
  Receive Date: 20050823
  Receipt Date: 20050811
  Transmission Date: 20060218
  Serious: Yes (Other)
  Sender: FDA-Public Use
  Company Number: DE-BRISTOL-MYERS SQUIBB COMPANY-13075163

PATIENT

DRUGS (1)
  1. VOLON-A INJ 40 MG/ML [Suspect]
     Indication: MACULOPATHY
     Route: 031

REACTIONS (1)
  - ENDOPHTHALMITIS [None]
